FAERS Safety Report 8495136 (Version 3)
Quarter: 2012Q4

REPORT INFORMATION
  Report Type: 
  Country: PT (occurrence: PT)
  Receive Date: 20120405
  Receipt Date: 20120911
  Transmission Date: 20130627
  Serious: Yes (Other)
  Sender: FDA-Public Use
  Company Number: PT-JNJFOC-20120400511

PATIENT
  Sex: Male

DRUGS (10)
  1. STELARA [Suspect]
     Indication: PSORIATIC ARTHROPATHY
     Route: 058
  2. STELARA [Suspect]
     Indication: PSORIATIC ARTHROPATHY
     Route: 058
  3. STELARA [Suspect]
     Indication: PSORIATIC ARTHROPATHY
     Dosage: 2 months ago
     Route: 058
  4. STELARA [Suspect]
     Indication: PSORIATIC ARTHROPATHY
     Route: 058
  5. STELARA [Suspect]
     Indication: PSORIASIS
     Dosage: 2 months ago
     Route: 058
  6. STELARA [Suspect]
     Indication: PSORIASIS
     Route: 058
  7. STELARA [Suspect]
     Indication: PSORIASIS
     Route: 058
  8. STELARA [Suspect]
     Indication: PSORIASIS
     Route: 058
  9. LEDERTREXATE /00113801/ [Suspect]
     Indication: PRODUCT USED FOR UNKNOWN INDICATION
     Route: 065
  10. CORTICOSTEROIDS [Concomitant]
     Indication: PRODUCT USED FOR UNKNOWN INDICATION
     Route: 048

REACTIONS (3)
  - Transaminases increased [Recovered/Resolved]
  - Off label use [Unknown]
  - Therapeutic response unexpected [Unknown]
